FAERS Safety Report 18728105 (Version 4)
Quarter: 2021Q3

REPORT INFORMATION
  Report Type: Report from Study
  Country: US (occurrence: US)
  Receive Date: 20210112
  Receipt Date: 20210710
  Transmission Date: 20211014
  Serious: No
  Sender: FDA-Public Use
  Company Number: NVSC2021US004495

PATIENT
  Sex: Female

DRUGS (2)
  1. COSENTYX [Suspect]
     Active Substance: SECUKINUMAB
     Dosage: 300 MG
     Route: 058
  2. COSENTYX [Suspect]
     Active Substance: SECUKINUMAB
     Indication: PSORIASIS
     Dosage: 300 MG, QW, BENEATH THE SKIN, USUALLY VIA INJECTION.
     Route: 058

REACTIONS (3)
  - Drug ineffective [Unknown]
  - Chest discomfort [Recovered/Resolved]
  - Arthralgia [Recovered/Resolved]
